FAERS Safety Report 9391193 (Version 2)
Quarter: 2013Q4

REPORT INFORMATION
  Report Type: Spontaneous
  Country: IT (occurrence: IT)
  Receive Date: 20130709
  Receipt Date: 20131108
  Transmission Date: 20140711
  Serious: Yes (Life-Threatening, Hospitalization)
  Sender: FDA-Public Use
  Company Number: IT-BAYER-2013-082425

PATIENT
  Age: 65 Year
  Sex: Male
  Weight: 85 kg

DRUGS (2)
  1. NEXAVAR [Suspect]
     Indication: HEPATOCELLULAR CARCINOMA
     Dosage: 800 MG DAILY
     Route: 048
     Dates: start: 20081230, end: 20130216
  2. TICLOPIDINE [Concomitant]
     Indication: VASCULAR ANOMALY
     Dosage: 250 MG, QD
     Route: 048
     Dates: start: 20110822, end: 20130217

REACTIONS (1)
  - Acute coronary syndrome [Recovering/Resolving]
